FAERS Safety Report 5142182-2 (Version None)
Quarter: 2006Q4

REPORT INFORMATION
  Report Type: 
  Country: None (occurrence: None)
  Receive Date: 20061027
  Receipt Date: 20061016
  Transmission Date: 20070319
  Serious: Yes (Hospitalization, Disabling, Other)
  Sender: FDA-Public Use
  Company Number: HQWYE735803AUG04

PATIENT
  Age: 57 Year
  Sex: Female

DRUGS (2)
  1. PREMARIN [Suspect]
     Dosage: ORAL
     Route: 048
     Dates: start: 19820101, end: 20020601
  2. PROVERA [Suspect]

REACTIONS (11)
  - AFFECT LABILITY [None]
  - CEREBRAL INFARCTION [None]
  - CEREBROVASCULAR ACCIDENT [None]
  - CEREBROVASCULAR ARTERIOVENOUS MALFORMATION [None]
  - DEEP VEIN THROMBOSIS [None]
  - DRY GANGRENE [None]
  - FOOT AMPUTATION [None]
  - INTRACRANIAL ANEURYSM [None]
  - MITRAL VALVE INCOMPETENCE [None]
  - PERIPHERAL ISCHAEMIA [None]
  - WALKING AID USER [None]
